FAERS Safety Report 8165282-1 (Version None)
Quarter: 2012Q1

REPORT INFORMATION
  Report Type: 
  Country: None (occurrence: None)
  Receive Date: 20120222
  Receipt Date: 20120222
  Transmission Date: 20120608
  Serious: Yes (Hospitalization)
  Sender: FDA-Public Use
  Company Number: None

PATIENT
  Sex: Female
  Weight: 111.4 kg

DRUGS (2)
  1. ZOLOFT [Suspect]
     Indication: POST-TRAUMATIC STRESS DISORDER
     Dosage: 150MG 1X DAILY ORAL - 047
     Route: 048
     Dates: start: 20111026, end: 20120125
  2. PROLONGED EXPOSURE THERAPY (CBT) [Concomitant]

REACTIONS (1)
  - PNEUMONIA [None]
